FAERS Safety Report 8746467 (Version 3)
Quarter: 2012Q4

REPORT INFORMATION
  Report Type: 
  Country: US (occurrence: US)
  Receive Date: 20120827
  Receipt Date: 20120906
  Transmission Date: 20130627
  Serious: Yes (Other)
  Sender: FDA-Public Use
  Company Number: US-SANOFI-AVENTIS-2012SA060665

PATIENT
  Age: 71 Year
  Sex: Male

DRUGS (5)
  1. MULTAQ [Suspect]
     Indication: ATRIAL FIBRILLATION
     Route: 048
     Dates: start: 2011, end: 20120510
  2. MULTAQ [Suspect]
     Indication: ATRIAL FIBRILLATION
     Route: 048
     Dates: start: 201207
  3. DABIGATRAN ETEXILATE [Concomitant]
     Dates: end: 20120510
  4. DABIGATRAN ETEXILATE [Concomitant]
     Dates: start: 201207
  5. ROSUVASTATIN CALCIUM [Concomitant]

REACTIONS (2)
  - Prostate cancer [Unknown]
  - Upper respiratory tract infection [Not Recovered/Not Resolved]
